FAERS Safety Report 15030414 (Version 1)
Quarter: 2018Q2

REPORT INFORMATION
  Report Type: Spontaneous
  Country: DE (occurrence: DE)
  Receive Date: 20180619
  Receipt Date: 20180619
  Transmission Date: 20180711
  Serious: Yes (Other)
  Sender: FDA-Public Use
  Company Number: DE-US WORLDMEDS, LLC-STA_00019412

PATIENT
  Sex: Male

DRUGS (1)
  1. APOMORPHINE HYDROCHLORIDE [Suspect]
     Active Substance: APOMORPHINE HYDROCHLORIDE
     Indication: PRODUCT USED FOR UNKNOWN INDICATION

REACTIONS (4)
  - Laryngeal cancer [Unknown]
  - Drug ineffective [Unknown]
  - General physical health deterioration [Unknown]
  - Insomnia [Unknown]
